FAERS Safety Report 10027881 (Version 1)
Quarter: 2014Q1

REPORT INFORMATION
  Report Type: Spontaneous
  Country: US (occurrence: US)
  Receive Date: 20140321
  Receipt Date: 20140321
  Transmission Date: 20141002
  Serious: No
  Sender: FDA-Public Use
  Company Number: US-009507513-1403USA008898

PATIENT
  Age: 45 Year
  Sex: Male

DRUGS (2)
  1. JANUVIA [Suspect]
     Indication: TYPE 2 DIABETES MELLITUS
     Dosage: 100 MG, QD
     Route: 048
     Dates: start: 201202, end: 201206
  2. METFORMIN [Concomitant]
     Dosage: 500 MG, BID

REACTIONS (2)
  - Blood glucose decreased [Recovered/Resolved]
  - Upper respiratory tract infection [Recovered/Resolved]
